FAERS Safety Report 23358239 (Version 1)
Quarter: 2024Q1

REPORT INFORMATION
  Report Type: Spontaneous
  Country: ES (occurrence: ES)
  Receive Date: 20240102
  Receipt Date: 20240102
  Transmission Date: 20240409
  Serious: Yes (Other)
  Sender: FDA-Public Use
  Company Number: ES-KERNPHARMA-202302501

PATIENT
  Age: 17 Year
  Sex: Female

DRUGS (3)
  1. ZONISAMIDE [Suspect]
     Active Substance: ZONISAMIDE
     Indication: Epilepsy congenital
     Dosage: UNK
     Route: 048
  2. PHENOBARBITAL [Suspect]
     Active Substance: PHENOBARBITAL
     Indication: Epilepsy congenital
     Dosage: 90 MILLIGRAM, QD, 3 TABLETS AT MORNING AND 3 TABLETS AT NIGHT
     Route: 048
     Dates: start: 2016
  3. VIMPAT [Suspect]
     Active Substance: LACOSAMIDE
     Indication: Epilepsy congenital
     Dosage: UNK
     Route: 048

REACTIONS (3)
  - Osteoporosis [Not Recovered/Not Resolved]
  - Femur fracture [Recovered/Resolved]
  - Hypokinesia [Not Recovered/Not Resolved]

NARRATIVE: CASE EVENT DATE: 20160101
